FAERS Safety Report 11273143 (Version 1)
Quarter: 2015Q3

REPORT INFORMATION
  Report Type: Spontaneous
  Country: US (occurrence: None)
  Receive Date: 20150714
  Receipt Date: 20150714
  Transmission Date: 20151125
  Serious: Yes (Life-Threatening)
  Sender: FDA-Public Use
  Company Number: None

PATIENT
  Age: 35 Year
  Sex: Male
  Weight: 68.04 kg

DRUGS (2)
  1. MELOXICAM 7.5 MG [Suspect]
     Active Substance: MELOXICAM
     Indication: NECK INJURY
     Route: 048
     Dates: start: 20150609, end: 20150712
  2. ZANTAC [Concomitant]
     Active Substance: RANITIDINE HYDROCHLORIDE

REACTIONS (3)
  - Headache [None]
  - Insomnia [None]
  - Epistaxis [None]

NARRATIVE: CASE EVENT DATE: 20150712
